FAERS Safety Report 5050980-9 (Version None)
Quarter: 2006Q3

REPORT INFORMATION
  Report Type: 
  Country: None (occurrence: None)
  Receive Date: 20060714
  Receipt Date: 20060616
  Transmission Date: 20061208
  Serious: Yes (Death, Hospitalization)
  Sender: FDA-Public Use
  Company Number: PHBS2006JP09093

PATIENT
  Age: 47 Year
  Sex: Male
  Weight: 77 kg

DRUGS (1)
  1. VOLTAREN [Suspect]
     Indication: PROCEDURAL PAIN
     Dosage: 100 MG, ONCE/SINGLE
     Route: 054
     Dates: start: 20050215, end: 20050215

REACTIONS (9)
  - BLOOD PRESSURE DECREASED [None]
  - BLOOD PRESSURE INCREASED [None]
  - BODY TEMPERATURE DECREASED [None]
  - CARDIAC ARREST [None]
  - DEATH [None]
  - HEART RATE INCREASED [None]
  - HYPOVENTILATION [None]
  - PALLOR [None]
  - RESPIRATORY ARREST [None]
